FAERS Safety Report 7977115-4 (Version None)
Quarter: 2011Q4

REPORT INFORMATION
  Report Type: 
  Country: None (occurrence: None)
  Receive Date: 20111213
  Receipt Date: 20111111
  Transmission Date: 20120403
  Serious: No
  Sender: FDA-Public Use
  Company Number: US-AMGEN-USASP2011059637

PATIENT
  Sex: Female

DRUGS (2)
  1. NAPROXEN [Concomitant]
  2. ENBREL [Suspect]
     Indication: PSORIATIC ARTHROPATHY
     Dosage: 50 MG, QWK
     Dates: start: 20080901

REACTIONS (3)
  - RASH [None]
  - ARTHROPATHY [None]
  - ARTHROPOD BITE [None]
